FAERS Safety Report 5532893-9 (Version None)
Quarter: 2007Q4

REPORT INFORMATION
  Report Type: 
  Country: None (occurrence: None)
  Receive Date: 20071204
  Receipt Date: 20071128
  Transmission Date: 20080405
  Serious: Yes (Other)
  Sender: FDA-Public Use
  Company Number: US-ASTRAZENECA-2007UW27216

PATIENT
  Age: 59 Year
  Sex: Female
  Weight: 60.3 kg

DRUGS (13)
  1. ARIMIDEX [Suspect]
     Indication: BREAST CANCER
     Route: 048
     Dates: start: 20070401
  2. NIACIN [Concomitant]
  3. MULTIVITAMIN W/MINERALS [Concomitant]
  4. CALCIUM [Concomitant]
  5. OMEGA 3 [Concomitant]
  6. GABAPENTIN [Concomitant]
  7. VALIUM [Concomitant]
  8. OMEPRAZOLE [Concomitant]
  9. VITAMIN E [Concomitant]
  10. VITAMIN D [Concomitant]
  11. AMBIEN [Concomitant]
  12. PERCOCET [Concomitant]
  13. FIBERCON [Concomitant]

REACTIONS (4)
  - BLOOD CHOLESTEROL INCREASED [None]
  - BLOOD THYROID STIMULATING HORMONE INCREASED [None]
  - BLOOD TRIGLYCERIDES INCREASED [None]
  - FATIGUE [None]
